FAERS Safety Report 8943902 (Version 1)
Quarter: 2012Q4

REPORT INFORMATION
  Report Type: 
  Country: GB (occurrence: GB)
  Receive Date: 20121204
  Receipt Date: 20121204
  Transmission Date: 20130627
  Serious: Yes (Death, Congenital Anomaly)
  Sender: FDA-Public Use
  Company Number: GB-WATSON-2012-20767

PATIENT

DRUGS (1)
  1. CABERGOLINE (UNKNOWN) [Suspect]
     Indication: HYPERPROLACTINAEMIA
     Dosage: 500 mcg, daily
     Route: 064

REACTIONS (2)
  - Trisomy 18 [Unknown]
  - Foetal death [Fatal]
